FAERS Safety Report 7360681 (Version 2)
Quarter: 2014Q2

REPORT INFORMATION
  Report Type: Spontaneous
  Country: FR (occurrence: None)
  Receive Date: 20100406
  Receipt Date: 20140416
  Transmission Date: 20141212
  Serious: Yes (Other)
  Sender: FDA-Public Use
  Company Number: AUR-APL-2010-00868

PATIENT
  Age: 50 Year
  Sex: Male

DRUGS (2)
  1. RIBAVIRIN [Suspect]
     Indication: HEPATITIS C
  2. PEGINTERFERON ALFA-2B [Suspect]
     Indication: HEPATITIS C

REACTIONS (8)
  - Retinopathy [None]
  - Retinal vein occlusion [None]
  - Visual field defect [None]
  - Retinal exudates [None]
  - Eye haemorrhage [None]
  - Visual field defect [None]
  - Aneurysm [None]
  - Drug ineffective [None]
